FAERS Safety Report 9004896 (Version 2)
Quarter: 2013Q1

REPORT INFORMATION
  Report Type: Spontaneous
  Country: US (occurrence: US)
  Receive Date: 20130109
  Receipt Date: 20130131
  Transmission Date: 20140127
  Serious: Yes (Other)
  Sender: FDA-Public Use
  Company Number: US-BAYER-2013-002607

PATIENT
  Age: 29 Year
  Sex: Female
  Weight: 116.55 kg

DRUGS (3)
  1. MIRENA [Suspect]
     Indication: CONTRACEPTION
     Dosage: 20 MCG/24HR, CONT
     Route: 015
     Dates: start: 20100129, end: 20130106
  2. MIRENA [Suspect]
     Indication: MENORRHAGIA
  3. IBUPROFEN [Concomitant]
     Indication: ABDOMINAL PAIN
     Dosage: UNK
     Dates: start: 20100129

REACTIONS (4)
  - Device dislocation [None]
  - Medical device discomfort [None]
  - Abdominal pain [None]
  - Coital bleeding [None]
